FAERS Safety Report 4579565-5 (Version None)
Quarter: 2005Q1

REPORT INFORMATION
  Report Type: 
  Country: None (occurrence: None)
  Receive Date: 20050214
  Receipt Date: 20050201
  Transmission Date: 20050727
  Serious: Yes (Hospitalization)
  Sender: FDA-Public Use
  Company Number: JP-JNJFOC-20040905780

PATIENT
  Sex: Female
  Weight: 33 kg

DRUGS (18)
  1. REMICADE [Suspect]
     Route: 042
  2. REMICADE [Suspect]
     Route: 042
  3. REMICADE [Suspect]
     Route: 042
  4. REMICADE [Suspect]
     Route: 042
  5. REMICADE [Suspect]
     Route: 042
  6. REMICADE [Suspect]
     Indication: RHEUMATOID ARTHRITIS
     Route: 042
  7. METHOTREXATE [Concomitant]
     Route: 049
  8. METHOTREXATE [Concomitant]
     Route: 049
  9. METHOTREXATE [Concomitant]
     Route: 049
  10. PREDONINE [Concomitant]
     Indication: RHEUMATOID ARTHRITIS
     Route: 049
  11. LOXONIN [Concomitant]
     Route: 049
  12. BASEN [Concomitant]
     Dosage: 0.3
     Route: 049
  13. MUCODYNE [Concomitant]
     Dosage: 3 TABLETS DAILY
     Route: 049
  14. ALFAROL [Concomitant]
     Route: 049
  15. GASTOR [Concomitant]
     Route: 049
  16. CLARITH [Concomitant]
     Dosage: 1 TABLET DAILY
     Route: 049
  17. CALCIUM LACTATE [Concomitant]
     Route: 049
  18. KEISHI KARYO NINJIN BUTO [Concomitant]
     Route: 049

REACTIONS (3)
  - ABSCESS [None]
  - HERPES ZOSTER [None]
  - PNEUMONIA [None]
